FAERS Safety Report 25353460 (Version 2)
Quarter: 2025Q3

REPORT INFORMATION
  Report Type: Spontaneous
  Country: EU (occurrence: EU)
  Receive Date: 20250523
  Receipt Date: 20250820
  Transmission Date: 20251021
  Serious: Yes (Hospitalization)
  Sender: ELI LILLY AND COMPANY
  Company Number: EU-ELI_LILLY_AND_COMPANY-DE202505014478

PATIENT
  Age: 47 Year
  Sex: Male
  Weight: 87 kg

DRUGS (5)
  1. LEBRIKIZUMAB [Suspect]
     Active Substance: LEBRIKIZUMAB
     Indication: Dermatitis atopic
     Route: 058
     Dates: start: 20240719
  2. OFLOXACIN [Concomitant]
     Active Substance: OFLOXACIN
     Indication: Product used for unknown indication
     Dosage: UNK UNK, 1 DROP LEFT EYE BID (1-0-1)
     Route: 047
  3. ACYCLOVIR SODIUM [Concomitant]
     Active Substance: ACYCLOVIR SODIUM
     Indication: Product used for unknown indication
     Dosage: 400 MG, DAILY
     Route: 065
  4. DEXAMETHASONE [Concomitant]
     Active Substance: DEXAMETHASONE
     Indication: Product used for unknown indication
     Dosage: UNK UNK, 1 DROP EACH EYE BID (1-0-1)
     Route: 047
  5. NALOXONE HYDROCHLORIDE\TILIDINE HYDROCHLORIDE [Concomitant]
     Active Substance: NALOXONE HYDROCHLORIDE\TILIDINE HYDROCHLORIDE
     Indication: Product used for unknown indication
     Dosage: 100/8MG, BID,  TO BE GRADUALLY REDUCED
     Route: 065

REACTIONS (2)
  - Pulmonary sarcoidosis [Not Recovered/Not Resolved]
  - Sarcoidosis of lymph node [Recovered/Resolved]

NARRATIVE: CASE EVENT DATE: 20250122
